FAERS Safety Report 6388946-9 (Version None)
Quarter: 2009Q4

REPORT INFORMATION
  Report Type: 
  Country: None (occurrence: None)
  Receive Date: 20091001
  Receipt Date: 20090922
  Transmission Date: 20100525
  Serious: Yes (Other)
  Sender: FDA-Public Use
  Company Number: ADR29372009

PATIENT
  Age: 83 Year
  Sex: Female

DRUGS (14)
  1. RAMIPRIL [Suspect]
     Dosage: 2.5 MG, ORAL
     Route: 048
     Dates: start: 20060604, end: 20060610
  2. AMIODARONE [Concomitant]
  3. CALCICHEW D3 [Concomitant]
  4. CYCLIZINE [Concomitant]
  5. FENTANYL [Concomitant]
  6. FOLIC ACID [Concomitant]
  7. FRUSEMIDE [Concomitant]
  8. GLUCONATE [Concomitant]
  9. MEBEVERINE [Concomitant]
  10. NULYTELY [Concomitant]
  11. PREDNISOLONE [Concomitant]
  12. PROTIUM [Concomitant]
  13. SPIRONOLACTONE [Concomitant]
  14. WARFARIN SODIUM [Concomitant]

REACTIONS (3)
  - CONFUSIONAL STATE [None]
  - DERMATITIS BULLOUS [None]
  - MOBILITY DECREASED [None]
